FAERS Safety Report 23858444 (Version 1)
Quarter: 2024Q2

REPORT INFORMATION
  Report Type: Spontaneous
  Country: US (occurrence: US)
  Receive Date: 20240515
  Receipt Date: 20240515
  Transmission Date: 20240716
  Serious: No
  Sender: FDA-Public Use
  Company Number: US-009507513-2405USA002943

PATIENT
  Sex: Female

DRUGS (2)
  1. KEYTRUDA [Suspect]
     Active Substance: PEMBROLIZUMAB
     Indication: Rectal cancer
     Dosage: UNK
  2. CAPECITABINE [Concomitant]
     Active Substance: CAPECITABINE
     Indication: Rectal cancer
     Dosage: UNK

REACTIONS (1)
  - Off label use [Unknown]
